FAERS Safety Report 17039175 (Version 5)
Quarter: 2020Q3

REPORT INFORMATION
  Report Type: Spontaneous
  Country: US (occurrence: US)
  Receive Date: 20191115
  Receipt Date: 20200703
  Transmission Date: 20201102
  Serious: Yes (Other)
  Sender: FDA-Public Use
  Company Number: US-SA-2019SA310297

PATIENT

DRUGS (6)
  1. DUPIXENT [Suspect]
     Active Substance: DUPILUMAB
     Indication: DERMATITIS ATOPIC
     Dosage: 600 MG, 1X
     Route: 058
     Dates: start: 2019
  2. METHOTREXATE. [Concomitant]
     Active Substance: METHOTREXATE
  3. OTEZLA [Concomitant]
     Active Substance: APREMILAST
  4. HUMIRA [Concomitant]
     Active Substance: ADALIMUMAB
  5. VITAMIN B12 [Concomitant]
     Active Substance: CYANOCOBALAMIN
  6. DUPIXENT [Suspect]
     Active Substance: DUPILUMAB
     Dosage: 300 MG, QOW
     Route: 058

REACTIONS (4)
  - Autoimmune disorder [Unknown]
  - Needle issue [Unknown]
  - Injection site pain [Unknown]
  - Skin disorder [Unknown]
